FAERS Safety Report 7504346-X (Version None)
Quarter: 2011Q2

REPORT INFORMATION
  Report Type: 
  Country: None (occurrence: None)
  Receive Date: 20110525
  Receipt Date: 20110517
  Transmission Date: 20111010
  Serious: Yes (Other)
  Sender: FDA-Public Use
  Company Number: FI-BAXTER-2011BH016624

PATIENT

DRUGS (7)
  1. WARFARIN SODIUM [Suspect]
     Indication: COAGULOPATHY
     Route: 048
  2. FENTANYL [Concomitant]
     Indication: SEDATION
     Route: 065
  3. MIDAZOLAM HCL [Concomitant]
     Indication: SEDATION
     Route: 065
  4. HEPARIN [Suspect]
     Indication: COAGULOPATHY
     Route: 040
  5. HEPARIN [Suspect]
     Route: 041
  6. HEPARIN [Suspect]
     Route: 041
  7. ENOXAPARIN [Suspect]
     Indication: COAGULOPATHY
     Route: 065

REACTIONS (1)
  - PERICARDIAL EFFUSION [None]
